FAERS Safety Report 11256363 (Version 1)
Quarter: 2015Q3

REPORT INFORMATION
  Report Type: Spontaneous
  Country: FR (occurrence: FR)
  Receive Date: 20150709
  Receipt Date: 20150709
  Transmission Date: 20151125
  Serious: Yes (Life-Threatening, Hospitalization)
  Sender: FDA-Public Use
  Company Number: FR-JNJFOC-20150700164

PATIENT
  Age: 85 Year
  Sex: Male

DRUGS (17)
  1. SKENAN [Concomitant]
     Active Substance: MORPHINE SULFATE
     Route: 065
  2. SERETIDE [Concomitant]
     Active Substance: FLUTICASONE FUROATE\SALMETEROL XINAFOATE
     Route: 065
  3. KALEORID [Concomitant]
     Active Substance: POTASSIUM CHLORIDE
     Route: 065
  4. DAFALGAN [Concomitant]
     Active Substance: ACETAMINOPHEN
     Route: 065
  5. ZYTIGA [Suspect]
     Active Substance: ABIRATERONE ACETATE
     Indication: PRODUCT USED FOR UNKNOWN INDICATION
     Dosage: 250*4 TABLET
     Route: 048
     Dates: end: 201407
  6. ZOPICLONE [Concomitant]
     Active Substance: ZOPICLONE
     Route: 065
  7. UVEDOSE [Concomitant]
     Active Substance: CHOLECALCIFEROL
     Dosage: 1 AMPOULE
     Route: 065
  8. LASILIX [Concomitant]
     Active Substance: FUROSEMIDE
     Route: 065
  9. MACROGOL [Concomitant]
     Active Substance: POLYETHYLENE GLYCOLS
     Route: 065
  10. ALPHAGAN P [Concomitant]
     Active Substance: BRIMONIDINE TARTRATE
     Route: 065
  11. LUMIGAN [Concomitant]
     Active Substance: BIMATOPROST
     Route: 065
  12. ZYTIGA [Suspect]
     Active Substance: ABIRATERONE ACETATE
     Indication: PRODUCT USED FOR UNKNOWN INDICATION
     Dosage: 250*4 TABLET
     Route: 048
     Dates: start: 201501, end: 20150322
  13. LYRICA [Concomitant]
     Active Substance: PREGABALIN
     Route: 065
  14. UROREC [Concomitant]
     Active Substance: SILODOSIN
     Route: 065
  15. ACTISKENAN [Concomitant]
     Active Substance: MORPHINE SULFATE
     Route: 065
  16. SULFARLEM [Concomitant]
     Active Substance: ANETHOLTRITHION
     Route: 065
  17. PREVISCAN (FLUINDIONE) [Concomitant]
     Active Substance: FLUINDIONE
     Route: 065

REACTIONS (9)
  - Lymphorrhoea [Unknown]
  - Hyperadrenocorticism [Unknown]
  - Arrhythmia [Recovered/Resolved]
  - Dyspnoea [Unknown]
  - Lymphoedema [Unknown]
  - Skin ulcer [Unknown]
  - Eczema [Unknown]
  - Cardio-respiratory arrest [Recovered/Resolved]
  - Hypokalaemia [Recovered/Resolved]
